FAERS Safety Report 17417035 (Version 1)
Quarter: 2020Q1

REPORT INFORMATION
  Report Type: Report from Study
  Country: None (occurrence: BR)
  Receive Date: 20200214
  Receipt Date: 20200214
  Transmission Date: 20200409
  Serious: Yes (Hospitalization, Other)
  Sender: FDA-Public Use
  Company Number: BR-ABBVIE-20K-020-3272235-00

PATIENT
  Age: 1 Year
  Sex: Male

DRUGS (4)
  1. SYNAGIS [Suspect]
     Active Substance: PALIVIZUMAB
     Indication: BRONCHOPULMONARY DYSPLASIA
     Route: 050
     Dates: start: 20190101
  2. SERETIDE [Concomitant]
     Active Substance: FLUTICASONE PROPIONATE\SALMETEROL XINAFOATE
     Indication: BRONCHOPULMONARY DYSPLASIA
  3. SPIRIVA [Concomitant]
     Active Substance: TIOTROPIUM BROMIDE MONOHYDRATE
     Indication: BRONCHOPULMONARY DYSPLASIA
  4. PULMICORT TURBUHALER [Concomitant]
     Active Substance: BUDESONIDE
     Indication: BRONCHOPULMONARY DYSPLASIA
     Route: 055

REACTIONS (8)
  - Respiratory failure [Unknown]
  - Stenosis [Unknown]
  - Bronchiolitis [Recovered/Resolved]
  - Bronchiolitis [Recovered/Resolved]
  - Pneumonia [Recovered/Resolved]
  - Gastrooesophageal reflux disease [Not Recovered/Not Resolved]
  - Hospitalisation [Unknown]
  - Laryngeal stenosis [Unknown]

NARRATIVE: CASE EVENT DATE: 2019
